FAERS Safety Report 8721757 (Version 2)
Quarter: 2013Q3

REPORT INFORMATION
  Report Type: Spontaneous
  Country: US (occurrence: None)
  Receive Date: 20120727
  Receipt Date: 20130725
  Transmission Date: 20140515
  Serious: Yes (Disabling, Other)
  Sender: FDA-Public Use
  Company Number: 2012AP002163

PATIENT
  Sex: Female

DRUGS (1)
  1. ALENDRONATE SODIUM [Suspect]
     Indication: OSTEOPOROSIS

REACTIONS (11)
  - Stress fracture [None]
  - Osteogenesis imperfecta [None]
  - Anxiety [None]
  - Emotional distress [None]
  - Fear [None]
  - Pain [None]
  - Osteoporosis [None]
  - Stress [None]
  - Low turnover osteopathy [None]
  - Femur fracture [None]
  - Anhedonia [None]
